FAERS Safety Report 15342351 (Version 1)
Quarter: 2018Q3

REPORT INFORMATION
  Report Type: Spontaneous
  Country: CA (occurrence: CA)
  Receive Date: 20180902
  Receipt Date: 20180902
  Transmission Date: 20181010
  Serious: Yes (Hospitalization)
  Sender: FDA-Public Use
  Company Number: PHHY2018CA084401

PATIENT
  Age: 70 Year
  Sex: Male
  Weight: 57 kg

DRUGS (3)
  1. ULONE [Concomitant]
     Indication: PRODUCT USED FOR UNKNOWN INDICATION
     Dosage: UNK
     Route: 065
  2. ONBREZ BREEZHALER [Concomitant]
     Active Substance: INDACATEROL
     Indication: PRODUCT USED FOR UNKNOWN INDICATION
     Dosage: UNK
     Route: 065
  3. LEVOFLOXACIN SANDOZ [Suspect]
     Active Substance: LEVOFLOXACIN
     Indication: PNEUMONIA
     Dosage: 750 MG, QD
     Route: 048

REACTIONS (3)
  - Myoclonus [Recovered/Resolved]
  - Facial spasm [Recovered/Resolved]
  - Muscle spasms [Recovered/Resolved]
